FAERS Safety Report 8256043-3 (Version None)
Quarter: 2012Q1

REPORT INFORMATION
  Report Type: 
  Country: None (occurrence: None)
  Receive Date: 20120330
  Receipt Date: 20120319
  Transmission Date: 20120608
  Serious: Yes (Other)
  Sender: FDA-Public Use
  Company Number: DSJ-2012-05558

PATIENT
  Age: 7 Decade
  Sex: Male

DRUGS (2)
  1. BENICAR HCT [Suspect]
     Indication: HYPERTENSION
     Dosage: 20/12.5MG (1 IN 1 D), PER ORAL
     Route: 048
     Dates: start: 20060101
  2. OMEPRAZOLE [Concomitant]

REACTIONS (4)
  - CATARACT [None]
  - BLOOD PRESSURE FLUCTUATION [None]
  - HYPERCHOLESTEROLAEMIA [None]
  - DRUG INEFFECTIVE [None]
